FAERS Safety Report 4761447-7 (Version None)
Quarter: 2005Q3

REPORT INFORMATION
  Report Type: 
  Country: None (occurrence: None)
  Receive Date: 20050901
  Receipt Date: 20050901
  Transmission Date: 20060218
  Serious: Yes (Hospitalization)
  Sender: FDA-Public Use
  Company Number: None

PATIENT
  Age: 53 Year
  Sex: Male
  Weight: 106 kg

DRUGS (10)
  1. LITHIUM CARBONATE [Suspect]
     Indication: BIPOLAR DISORDER
     Dosage: 600MG   BID  PO
     Route: 048
     Dates: start: 20020304, end: 20050720
  2. CITALOPRAM [Concomitant]
  3. FOLIC ACID [Concomitant]
  4. OLANZAPINE [Concomitant]
  5. NICOTINE [Concomitant]
  6. FORMOTEROL [Concomitant]
  7. FLUNISOLIDE [Concomitant]
  8. METOPROLOL [Concomitant]
  9. LORATADINE [Concomitant]
  10. OMEPRAZOLE [Concomitant]

REACTIONS (4)
  - AMNESIA [None]
  - GAIT DISTURBANCE [None]
  - MOTOR DYSFUNCTION [None]
  - THERAPEUTIC AGENT TOXICITY [None]
